FAERS Safety Report 11754029 (Version 1)
Quarter: 2015Q4

REPORT INFORMATION
  Report Type: Spontaneous
  Country: GB (occurrence: GB)
  Receive Date: 20151119
  Receipt Date: 20151119
  Transmission Date: 20160304
  Serious: Yes (Hospitalization, Other)
  Sender: FDA-Public Use
  Company Number: GB-AMGEN-GBRSP2015121971

PATIENT
  Age: 78 Year
  Sex: Male

DRUGS (1)
  1. ARANESP [Suspect]
     Active Substance: DARBEPOETIN ALFA
     Indication: PRODUCT USED FOR UNKNOWN INDICATION
     Dosage: 40MCG/0.4ML
     Route: 065

REACTIONS (2)
  - Cerebral haemorrhage [Recovering/Resolving]
  - Pulmonary oedema [Recovering/Resolving]

NARRATIVE: CASE EVENT DATE: 2015
